FAERS Safety Report 7717276-5 (Version None)
Quarter: 2011Q3

REPORT INFORMATION
  Report Type: 
  Country: None (occurrence: None)
  Receive Date: 20110830
  Receipt Date: 20110818
  Transmission Date: 20111222
  Serious: Yes (Hospitalization)
  Sender: FDA-Public Use
  Company Number: PL-JNJFOC-20110809247

PATIENT
  Age: 18 Year
  Sex: Female

DRUGS (3)
  1. REMICADE [Suspect]
     Indication: ILL-DEFINED DISORDER
     Dosage: INITIATED DOSE APPROXIMATELY 12-MAR-2011
     Route: 042
     Dates: start: 20110312
  2. REMICADE [Suspect]
     Route: 042
     Dates: start: 20110326
  3. PENTASA [Concomitant]
     Route: 065

REACTIONS (8)
  - ASTHENIA [None]
  - DENTAL CARIES [None]
  - INFUSION RELATED REACTION [None]
  - DIZZINESS [None]
  - CONVULSION [None]
  - ANAESTHESIA [None]
  - BLOOD PRESSURE INCREASED [None]
  - POLLAKIURIA [None]
